FAERS Safety Report 24586357 (Version 1)
Quarter: 2024Q4

REPORT INFORMATION
  Report Type: Spontaneous
  Country: CA (occurrence: CA)
  Receive Date: 20241106
  Receipt Date: 20241106
  Transmission Date: 20250115
  Serious: Yes (Other)
  Sender: JOHNSON AND JOHNSON
  Company Number: CA-JNJFOC-20240413249

PATIENT
  Sex: Male

DRUGS (7)
  1. INVEGA SUSTENNA [Suspect]
     Active Substance: PALIPERIDONE PALMITATE
     Indication: Product used for unknown indication
     Route: 030
  2. INVEGA SUSTENNA [Suspect]
     Active Substance: PALIPERIDONE PALMITATE
  3. INVEGA SUSTENNA [Suspect]
     Active Substance: PALIPERIDONE PALMITATE
  4. ABILIFY [Suspect]
     Active Substance: ARIPIPRAZOLE
     Indication: Blood prolactin increased
     Route: 065
     Dates: start: 2012
  5. ABILIFY MAINTENA [Suspect]
     Active Substance: ARIPIPRAZOLE
     Indication: Blood prolactin increased
     Route: 065
     Dates: start: 2017
  6. ABILIFY MAINTENA [Suspect]
     Active Substance: ARIPIPRAZOLE
     Route: 065
  7. ZYPREXA [Suspect]
     Active Substance: OLANZAPINE
     Indication: Product used for unknown indication
     Route: 065

REACTIONS (13)
  - Hallucination, auditory [Recovering/Resolving]
  - Laryngitis [Recovering/Resolving]
  - Eye discharge [Unknown]
  - Tendon disorder [Unknown]
  - Photopsia [Unknown]
  - Speech disorder [Unknown]
  - Overdose [Unknown]
  - Product use in unapproved indication [Unknown]
  - Agitation [Unknown]
  - Bruxism [Unknown]
  - Communication disorder [Unknown]
  - Mastication disorder [Unknown]
  - Eye discharge [Unknown]
